FAERS Safety Report 9626256 (Version 4)
Quarter: 2013Q4

REPORT INFORMATION
  Report Type: Spontaneous
  Country: DK (occurrence: DK)
  Receive Date: 20131016
  Receipt Date: 20131025
  Transmission Date: 20140711
  Serious: Yes (Other)
  Sender: FDA-Public Use
  Company Number: DK-PFIZER INC-2013S1008509

PATIENT
  Age: 31 Year
  Sex: Male
  Weight: 90 kg

DRUGS (4)
  1. ZELDOX [Suspect]
     Indication: MENTAL DISORDER
     Dosage: 20 MG, UNK
     Dates: start: 2010, end: 2013
  2. RISPERDAL [Suspect]
     Dosage: UNK
     Dates: end: 2013
  3. ZYPREXA [Suspect]
     Dosage: UNK
     Dates: end: 2013
  4. ESCITALOPRAM [Concomitant]
     Dosage: UNK

REACTIONS (3)
  - Erectile dysfunction [Unknown]
  - Gender identity disorder [Not Recovered/Not Resolved]
  - Semen volume decreased [Unknown]
